FAERS Safety Report 14661302 (Version 1)
Quarter: 2018Q1

REPORT INFORMATION
  Report Type: Spontaneous
  Country: NL (occurrence: NL)
  Receive Date: 20180320
  Receipt Date: 20180320
  Transmission Date: 20180509
  Serious: Yes (Hospitalization)
  Sender: FDA-Public Use
  Company Number: NL-PFIZER INC-2018108654

PATIENT

DRUGS (5)
  1. DEXAMETHASON [Suspect]
     Active Substance: DEXAMETHASONE
     Indication: COLORECTAL CANCER
     Dosage: UNK
     Route: 065
  2. AVASTIN [Suspect]
     Active Substance: BEVACIZUMAB
     Indication: COLORECTAL CANCER
     Dosage: 5 MG/KG, 2X/WEEK (MOST RECENT DOSE: 08/JUN/2017)
     Route: 042
     Dates: start: 20170524
  3. LEUCOVORIN. [Suspect]
     Active Substance: LEUCOVORIN
     Indication: COLORECTAL CANCER
     Dosage: 400 MG/M2, 2X/WEEK
     Route: 042
     Dates: start: 20170524
  4. OXALIPLATIN. [Suspect]
     Active Substance: OXALIPLATIN
     Indication: COLORECTAL CANCER
     Dosage: 85 MG/M2, 2X/WEEK
     Route: 042
     Dates: start: 20170524
  5. 5-FLUOROURACIL [Suspect]
     Active Substance: FLUOROURACIL
     Indication: COLORECTAL CANCER
     Dosage: 3200 MG/M2, 2X/WEEK (10/JUN/2017)
     Route: 042
     Dates: start: 20170524

REACTIONS (1)
  - Muscular weakness [Recovered/Resolved]

NARRATIVE: CASE EVENT DATE: 20170612
